FAERS Safety Report 20238927 (Version 1)
Quarter: 2021Q4

REPORT INFORMATION
  Report Type: Spontaneous
  Country: SG (occurrence: SG)
  Receive Date: 20211228
  Receipt Date: 20211228
  Transmission Date: 20220303
  Serious: Yes (Other)
  Sender: FDA-Public Use
  Company Number: SG-VIRTUS PHARMACEUTICALS, LLC-2021VTS00064

PATIENT
  Age: 82 Year
  Sex: Female

DRUGS (2)
  1. DAPSONE [Suspect]
     Active Substance: DAPSONE
     Indication: Pemphigus
     Route: 065
  2. DAPSONE [Suspect]
     Active Substance: DAPSONE
     Indication: Psoriasis

REACTIONS (4)
  - Red blood cell abnormality [Recovering/Resolving]
  - Haemolytic anaemia [Recovering/Resolving]
  - Haemolysis [Recovering/Resolving]
  - Methaemoglobinaemia [Recovering/Resolving]
